FAERS Safety Report 6313317-0 (Version None)
Quarter: 2009Q3

REPORT INFORMATION
  Report Type: 
  Country: None (occurrence: None)
  Receive Date: 20090818
  Receipt Date: 20090807
  Transmission Date: 20100115
  Serious: Yes (Death)
  Sender: FDA-Public Use
  Company Number: B0571896A

PATIENT
  Sex: Male

DRUGS (1)
  1. RELENZA [Suspect]
     Dosage: 10MG TWICE PER DAY
     Route: 055

REACTIONS (3)
  - CARDIO-RESPIRATORY ARREST [None]
  - CONVULSION [None]
  - MULTI-ORGAN FAILURE [None]
